FAERS Safety Report 5166186-9 (Version None)
Quarter: 2006Q4

REPORT INFORMATION
  Report Type: 
  Country: None (occurrence: None)
  Receive Date: 20061129
  Receipt Date: 20061116
  Transmission Date: 20070319
  Serious: Yes (Disabling, Other)
  Sender: FDA-Public Use
  Company Number: 2006142887

PATIENT
  Age: 46 Year
  Sex: Male
  Weight: 92.9874 kg

DRUGS (2)
  1. GEODON [Suspect]
     Indication: CONSTIPATION
     Dates: end: 20060804
  2. GEODON [Suspect]
     Indication: INTESTINAL FUNCTIONAL DISORDER
     Dates: end: 20060804

REACTIONS (32)
  - ARTHRALGIA [None]
  - BLOOD CALCIUM DECREASED [None]
  - BONE PAIN [None]
  - BURNING SENSATION [None]
  - CERVICAL SPINAL STENOSIS [None]
  - CHEST PAIN [None]
  - CHOKING SENSATION [None]
  - DEMENTIA ALZHEIMER'S TYPE [None]
  - DIZZINESS [None]
  - DYSPNOEA [None]
  - EYE PAIN [None]
  - GAIT DISTURBANCE [None]
  - HAEMORRHAGE [None]
  - HEADACHE [None]
  - HEARING IMPAIRED [None]
  - HEART RATE INCREASED [None]
  - HYPOAESTHESIA [None]
  - INTESTINAL FUNCTIONAL DISORDER [None]
  - JOINT INJURY [None]
  - LONG QT SYNDROME [None]
  - LOWER LIMB FRACTURE [None]
  - NECK PAIN [None]
  - NERVOUS SYSTEM DISORDER [None]
  - NERVOUSNESS [None]
  - OSTEOPOROSIS [None]
  - PARAESTHESIA [None]
  - PARATHYROID DISORDER [None]
  - PARKINSONISM [None]
  - PULMONARY VASCULAR DISORDER [None]
  - SPEECH DISORDER [None]
  - VISUAL DISTURBANCE [None]
  - WEIGHT DECREASED [None]
